FAERS Safety Report 13242144 (Version 5)
Quarter: 2017Q1

REPORT INFORMATION
  Report Type: Spontaneous
  Country: US (occurrence: US)
  Receive Date: 20170217
  Receipt Date: 20170329
  Transmission Date: 20170428
  Serious: No
  Sender: FDA-Public Use
  Company Number: ALCN2017US001414

PATIENT
  Age: 64 Year
  Sex: Female
  Weight: 71.2 kg

DRUGS (7)
  1. ESTRADIOL. [Concomitant]
     Active Substance: ESTRADIOL
     Indication: MENOPAUSE
     Dosage: 2 MG, QD
     Route: 065
     Dates: start: 2000
  2. RESTORIL [Concomitant]
     Active Substance: TEMAZEPAM
     Indication: INSOMNIA
     Dosage: 30 MG, QHS (1 AT NIGNT PRN)
     Route: 065
     Dates: start: 1998
  3. CALCIUM+VIT D [Concomitant]
     Indication: BLOOD CALCIUM DECREASED
  4. CALCIUM+VIT D [Concomitant]
     Indication: VITAMIN D DECREASED
     Dosage: 600 MG, QD
     Route: 065
     Dates: start: 2005
  5. BIOTIN [Concomitant]
     Active Substance: BIOTIN
     Indication: PRODUCT USED FOR UNKNOWN INDICATION
     Dosage: UNK UNK, QD
     Route: 065
     Dates: start: 2011
  6. SYSTANE ULTRA [Suspect]
     Active Substance: POLYETHYLENE GLYCOL 400\PROPYLENE GLYCOL
     Indication: DRY EYE
     Dosage: 1 GTT, BID
     Route: 047
     Dates: start: 20170216, end: 20170216
  7. ASPIRIN. [Concomitant]
     Active Substance: ASPIRIN
     Indication: PRODUCT USED FOR UNKNOWN INDICATION
     Dosage: 80 MG, QD
     Route: 065
     Dates: start: 2010

REACTIONS (13)
  - Corneal oedema [Recovering/Resolving]
  - Blister [Recovering/Resolving]
  - Ocular discomfort [Recovering/Resolving]
  - Eye swelling [Recovered/Resolved]
  - Photophobia [Recovering/Resolving]
  - Ocular hyperaemia [Recovered/Resolved]
  - Vomiting [Recovering/Resolving]
  - Expired product administered [Unknown]
  - Nausea [Recovering/Resolving]
  - Eye pain [Recovered/Resolved]
  - Scleral oedema [Recovering/Resolving]
  - Eye irritation [Recovering/Resolving]
  - Vision blurred [Recovering/Resolving]

NARRATIVE: CASE EVENT DATE: 20170216
